FAERS Safety Report 5228613-8 (Version None)
Quarter: 2007Q1

REPORT INFORMATION
  Report Type: 
  Country: None (occurrence: None)
  Receive Date: 20070205
  Receipt Date: 20070122
  Transmission Date: 20070707
  Serious: Yes (Hospitalization)
  Sender: FDA-Public Use
  Company Number: 2006CG02070

PATIENT
  Age: 22563 Day
  Sex: Female
  Weight: 93 kg

DRUGS (6)
  1. OMEPRAZOLE [Suspect]
     Indication: ABDOMINAL PAIN UPPER
     Route: 048
     Dates: start: 20061105, end: 20061218
  2. ATACAND [Concomitant]
     Indication: HYPERTENSION
  3. CLAMOXYL [Concomitant]
     Indication: ERYSIPELAS
  4. COUMADIN [Concomitant]
     Indication: THROMBOPHLEBITIS
  5. CACIT D3 [Concomitant]
  6. TRAMADOL HCL [Concomitant]
     Indication: PAIN

REACTIONS (3)
  - LEUKOCYTOCLASTIC VASCULITIS [None]
  - PROTEINURIA [None]
  - RENAL FAILURE ACUTE [None]
